FAERS Safety Report 9315768 (Version 2)
Quarter: 2013Q3

REPORT INFORMATION
  Report Type: Report from Study
  Country: BE (occurrence: BE)
  Receive Date: 20130529
  Receipt Date: 20130926
  Transmission Date: 20140515
  Serious: Yes (Hospitalization, Other)
  Sender: FDA-Public Use
  Company Number: BE-GILEAD-2013-0075764

PATIENT
  Age: 42 Year
  Sex: Female

DRUGS (13)
  1. TENOFOVIR DISOPROXIL FUMARATE [Suspect]
     Indication: HEPATITIS B
     Dosage: 1 DF, QD
     Route: 048
     Dates: start: 20121209, end: 20130326
  2. MARIBAVIR [Suspect]
     Indication: CYTOMEGALOVIRUS INFECTION
     Dosage: 2 DF, QD
     Route: 048
     Dates: start: 20130118, end: 20130308
  3. NEORAL [Suspect]
     Indication: IMMUNOSUPPRESSION
     Dosage: 100 MG, BID
     Route: 048
     Dates: start: 20130315, end: 20130402
  4. NEORAL [Suspect]
     Dosage: 20 MG, BID
     Route: 048
     Dates: start: 20130121, end: 20130207
  5. NEORAL [Suspect]
     Dosage: 200 MG, BID
     Route: 048
     Dates: start: 20130212, end: 20130314
  6. MYCOPHENOLATE MOFETIL [Concomitant]
     Indication: IMMUNOSUPPRESSION
     Dosage: 500 MG, BID
     Route: 048
  7. EMCONCOR [Concomitant]
     Indication: HYPERTENSION
     Dosage: UNK
     Dates: start: 20121229
  8. CITALOPRAM [Concomitant]
     Indication: DEPRESSION
     Dosage: UNK
     Dates: start: 20130112
  9. PROMAGNOR [Concomitant]
     Indication: HYPOMAGNESAEMIA
     Dosage: UNK
     Dates: start: 20130112
  10. ZANTAC [Concomitant]
     Indication: PROPHYLAXIS AGAINST GASTROINTESTINAL ULCER
     Dosage: UNK
     Dates: start: 20130112
  11. INSULIN [Concomitant]
     Indication: DIABETES MELLITUS
     Dosage: UNK
     Dates: start: 20121215
  12. MOTILIUM                           /00498201/ [Concomitant]
     Indication: NAUSEA
     Dosage: UNK
     Dates: start: 20120301
  13. AMLODIPINE [Concomitant]
     Indication: HYPERTENSION
     Dosage: UNK
     Dates: start: 20130320

REACTIONS (2)
  - Dehydration [Recovered/Resolved]
  - Renal failure acute [Recovered/Resolved]
